FAERS Safety Report 5096621-6 (Version None)
Quarter: 2006Q3

REPORT INFORMATION
  Report Type: 
  Country: None (occurrence: None)
  Receive Date: 20060831
  Receipt Date: 20060810
  Transmission Date: 20061208
  Serious: No
  Sender: FDA-Public Use
  Company Number: 06-46/130-07

PATIENT
  Age: 12 Year
  Sex: Male

DRUGS (1)
  1. MIXED AMPHETAMINE SALTS TABLETS 5 MG [Suspect]
     Indication: ATTENTION DEFICIT/HYPERACTIVITY DISORDER
     Dosage: 5 MG, QD, ORAL
     Route: 048
     Dates: start: 20060729

REACTIONS (1)
  - GRAND MAL CONVULSION [None]
